FAERS Safety Report 15211245 (Version 1)
Quarter: 2018Q3

REPORT INFORMATION
  Report Type: Spontaneous
  Country: US (occurrence: US)
  Receive Date: 20180701
  Receipt Date: 20180701
  Transmission Date: 20181010
  Serious: Yes (Other)
  Sender: FDA-Public Use
  Company Number: None

PATIENT
  Age: 31 Year
  Sex: Female
  Weight: 75.6 kg

DRUGS (1)
  1. NEXPLANON [Suspect]
     Active Substance: ETONOGESTREL
     Indication: CONTRACEPTION
     Route: 058
     Dates: start: 20170510

REACTIONS (11)
  - Headache [None]
  - Dizziness [None]
  - Nausea [None]
  - Impaired work ability [None]
  - Visual impairment [None]
  - Anxiety [None]
  - Depression [None]
  - Chest pain [None]
  - Neck pain [None]
  - Blood pressure increased [None]
  - Head discomfort [None]

NARRATIVE: CASE EVENT DATE: 20180619
